FAERS Safety Report 24064717 (Version 1)
Quarter: 2024Q3

REPORT INFORMATION
  Report Type: Spontaneous
  Country: DE (occurrence: DE)
  Receive Date: 20240709
  Receipt Date: 20240709
  Transmission Date: 20241016
  Serious: Yes (Other)
  Sender: Thea Pharma
  Company Number: None

PATIENT
  Age: 65 Year
  Sex: Male
  Weight: 65 kg

DRUGS (1)
  1. LATANOPROST [Suspect]
     Active Substance: LATANOPROST
     Indication: Glaucoma
     Dosage: EIN TROPFEN T?GLICH IN BEIDE AUGEN
     Route: 047
     Dates: start: 202105

REACTIONS (2)
  - Eyelid disorder [Recovered/Resolved with Sequelae]
  - Lenticular opacities [Recovered/Resolved with Sequelae]

NARRATIVE: CASE EVENT DATE: 20210101
